APPROVED DRUG PRODUCT: AVELOX IN SODIUM CHLORIDE 0.8% IN PLASTIC CONTAINER
Active Ingredient: MOXIFLOXACIN HYDROCHLORIDE
Strength: 400MG/250ML (1.6MG/ML) **Federal Register determination that product was not discontinued or withdrawn for safety or effectiveness reasons**
Dosage Form/Route: SOLUTION;INTRAVENOUS
Application: N021277 | Product #001
Applicant: BAYER HEALTHCARE PHARMACEUTICALS INC
Approved: Nov 30, 2001 | RLD: Yes | RS: No | Type: DISCN